FAERS Safety Report 20543699 (Version 3)
Quarter: 2022Q2

REPORT INFORMATION
  Report Type: Spontaneous
  Country: US (occurrence: US)
  Receive Date: 20220303
  Receipt Date: 20220429
  Transmission Date: 20220721
  Serious: Yes (Hospitalization)
  Sender: FDA-Public Use
  Company Number: US-RECORDATI-2022000571

PATIENT

DRUGS (26)
  1. ISTURISA [Suspect]
     Active Substance: OSILODROSTAT PHOSPHATE
     Indication: Cushing^s syndrome
     Dosage: 2 MILLIGRAM, BID
     Route: 048
     Dates: start: 20220122, end: 202201
  2. ISTURISA [Suspect]
     Active Substance: OSILODROSTAT PHOSPHATE
     Dosage: 1 MILLIGRAM, BID
     Route: 048
     Dates: start: 202201, end: 20220204
  3. ISTURISA [Suspect]
     Active Substance: OSILODROSTAT PHOSPHATE
     Dosage: 1 MILLIGRAM, QD
     Route: 048
     Dates: start: 202203, end: 20220331
  4. TRELEGY ELLIPTA [Concomitant]
     Active Substance: FLUTICASONE FUROATE\UMECLIDINIUM BROMIDE\VILANTEROL TRIFENATATE
     Indication: Chronic obstructive pulmonary disease
     Dosage: 2/62.5/25 MCG
  5. TRELEGY ELLIPTA [Concomitant]
     Active Substance: FLUTICASONE FUROATE\UMECLIDINIUM BROMIDE\VILANTEROL TRIFENATATE
     Dosage: UNK, TID
  6. LEVOTHYROXINE [Concomitant]
     Active Substance: LEVOTHYROXINE
     Indication: Hypothyroidism
     Dosage: 100 MICROGRAM, QD
  7. LISINOPRIL [Concomitant]
     Active Substance: LISINOPRIL
     Indication: Hypertension
     Dosage: 40 MILLIGRAM, QD
  8. PANTOPRAZOLE [Concomitant]
     Active Substance: PANTOPRAZOLE
     Indication: Gastrooesophageal reflux disease
     Dosage: 40 MILLIGRAM, QD
  9. METOPROLOL [Concomitant]
     Active Substance: METOPROLOL
     Indication: Hypertension
     Dosage: 25 MILLIGRAM, BID
  10. METOPROLOL [Concomitant]
     Active Substance: METOPROLOL
     Dosage: 25 MILLIGRAM, TID
  11. ROSUVASTATIN [Concomitant]
     Active Substance: ROSUVASTATIN
     Indication: Blood cholesterol increased
     Dosage: 40 MILLIGRAM, EVERY DAY AT BEDTIME
  12. NIACIN [Concomitant]
     Active Substance: NIACIN
     Indication: Blood cholesterol increased
     Dosage: 1000 MILLIGRAM, BID
  13. FUROSEMIDE [Concomitant]
     Active Substance: FUROSEMIDE
     Indication: Hypertension
     Dosage: 40 MILLIGRAM, QD
  14. POTASSIUM [Concomitant]
     Active Substance: POTASSIUM
     Indication: Hypokalaemia
     Dosage: 10 MILLIEQUIVALENT, BID
  15. NOVOLIN R [Concomitant]
     Active Substance: INSULIN HUMAN
     Indication: Blood glucose increased
     Dosage: 40 INTERNATIONAL UNIT, QD
  16. NOVOLIN N [Concomitant]
     Active Substance: INSULIN HUMAN
     Indication: Blood glucose increased
     Dosage: 100 INTERNATIONAL UNIT, BID
  17. GABAPENTIN [Concomitant]
     Active Substance: GABAPENTIN
     Indication: Neuropathy peripheral
     Dosage: 800 MILLIGRAM, QID
  18. METFORMIN [Concomitant]
     Active Substance: METFORMIN HYDROCHLORIDE
     Indication: Diabetes mellitus
     Dosage: 500 MILLIGRAM, BID
  19. ACETAMINOPHEN\HYDROCODONE [Concomitant]
     Active Substance: ACETAMINOPHEN\HYDROCODONE
     Indication: Neuralgia
     Dosage: 10/325
  20. VITAMINS NOS [Concomitant]
     Active Substance: VITAMINS
     Indication: Hypovitaminosis
     Dosage: UNK, QD
  21. VITAMIN E [Concomitant]
     Active Substance: .ALPHA.-TOCOPHEROL
     Indication: Hypovitaminosis
     Dosage: 45 MILLIGRAM, QD
  22. FISH OIL [Concomitant]
     Active Substance: FISH OIL
     Indication: Cardiac disorder
     Dosage: 1000 MILLIGRAM, BID
  23. ASPIRIN [Concomitant]
     Active Substance: ASPIRIN
     Indication: Cardiac disorder
     Dosage: 81 MILLIGRAM, QD
  24. ALBUTEROL [Concomitant]
     Active Substance: ALBUTEROL
     Indication: Chronic obstructive pulmonary disease
     Dosage: 1.25/300 EVERY 6 HOURS AS NEEDED
  25. GLIPIZIDE [Concomitant]
     Active Substance: GLIPIZIDE
     Indication: Blood glucose increased
     Dosage: 5 MILLIGRAM, BID
  26. FENOFIBRATE [Concomitant]
     Active Substance: FENOFIBRATE
     Indication: Blood triglycerides abnormal
     Dosage: 145 MILLIGRAM, QD

REACTIONS (12)
  - Hip surgery [Recovering/Resolving]
  - Amnesia [Unknown]
  - Pharyngeal erythema [Unknown]
  - Pharyngeal swelling [Unknown]
  - Fall [Unknown]
  - Headache [Unknown]
  - Nausea [Not Recovered/Not Resolved]
  - Dizziness [Not Recovered/Not Resolved]
  - Vomiting [Not Recovered/Not Resolved]
  - Off label use [Recovered/Resolved]
  - Therapy interrupted [Recovered/Resolved]
  - Off label use [Recovered/Resolved]

NARRATIVE: CASE EVENT DATE: 20220101
